FAERS Safety Report 10090436 (Version 1)
Quarter: 2014Q2

REPORT INFORMATION
  Report Type: Spontaneous
  Country: US (occurrence: US)
  Receive Date: 20140421
  Receipt Date: 20140421
  Transmission Date: 20141212
  Serious: Yes (Death)
  Sender: FDA-Public Use
  Company Number: US-PFIZER INC-2014108094

PATIENT
  Age: 29 Year
  Sex: Male

DRUGS (5)
  1. MORPHINE SULFATE [Suspect]
     Indication: HEADACHE
     Dosage: 10 MG , (2, 4, AND 4 MG AT 4-HOUR INTERVALS)
     Route: 042
  2. CODEINE [Suspect]
     Indication: HEADACHE
     Dosage: 60 MG, UNK
     Route: 048
  3. HYDROMORPHONE [Suspect]
     Indication: HEADACHE
     Dosage: 4 MG, UNK
     Route: 042
  4. ACETAMINOPHEN [Concomitant]
     Indication: HEADACHE
     Dosage: 650 MG, UNK
     Route: 048
  5. METOCLOPRAMIDE [Concomitant]
     Indication: HEADACHE
     Dosage: 10 MG, UNK
     Route: 042

REACTIONS (1)
  - Sudden death [Fatal]
